FAERS Safety Report 12084409 (Version 1)
Quarter: 2016Q1

REPORT INFORMATION
  Report Type: Spontaneous
  Country: US (occurrence: US)
  Receive Date: 20160217
  Receipt Date: 20160217
  Transmission Date: 20160526
  Serious: No
  Sender: FDA-Public Use
  Company Number: US-GLAXOSMITHKLINE-US2016GSK020599

PATIENT
  Sex: Male

DRUGS (2)
  1. VALACICLOVIR HYDROCHLORIDE [Suspect]
     Active Substance: VALACYCLOVIR HYDROCHLORIDE
  2. TERBINAFINE. [Suspect]
     Active Substance: TERBINAFINE

REACTIONS (2)
  - Drug ineffective [Unknown]
  - Product substitution issue [Unknown]
